FAERS Safety Report 8109525-9 (Version None)
Quarter: 2012Q1

REPORT INFORMATION
  Report Type: 
  Country: None (occurrence: None)
  Receive Date: 20120202
  Receipt Date: 20120116
  Transmission Date: 20120608
  Serious: No
  Sender: FDA-Public Use
  Company Number: US-AMGEN-USASP2011068305

PATIENT
  Age: 21 Year
  Sex: Male
  Weight: 81.179 kg

DRUGS (2)
  1. ENBREL [Suspect]
     Indication: RHEUMATOID ARTHRITIS
     Dosage: 50 MG, QWK
     Route: 058
     Dates: start: 20030101
  2. IBUPROFEN [Concomitant]
     Indication: PAIN
     Dosage: 400 MG, QDPRN
     Route: 048

REACTIONS (7)
  - INJECTION SITE SWELLING [None]
  - PAIN [None]
  - SUBCUTANEOUS ABSCESS [None]
  - INJECTION SITE PAIN [None]
  - RASH PAPULAR [None]
  - INJECTION SITE RASH [None]
  - INJECTION SITE ERYTHEMA [None]
